FAERS Safety Report 6493989-0 (Version None)
Quarter: 2009Q4

REPORT INFORMATION
  Report Type: 
  Country: None (occurrence: None)
  Receive Date: 20091214
  Receipt Date: 20081204
  Transmission Date: 20100525
  Serious: No
  Sender: FDA-Public Use
  Company Number: US-BRISTOL-MYERS SQUIBB COMPANY-14431373

PATIENT
  Sex: Male

DRUGS (2)
  1. ABILIFY [Suspect]
     Dates: end: 20081114
  2. NAMENDA [Suspect]
     Dates: end: 20081114

REACTIONS (2)
  - AGGRESSION [None]
  - AGITATION [None]
